FAERS Safety Report 18489537 (Version 1)
Quarter: 2020Q4

REPORT INFORMATION
  Report Type: Spontaneous
  Country: US (occurrence: US)
  Receive Date: 20201110
  Receipt Date: 20201110
  Transmission Date: 20210114
  Serious: No
  Sender: FDA-Public Use
  Company Number: None

PATIENT
  Age: 66 Year
  Sex: Male

DRUGS (1)
  1. COSENTYX [Suspect]
     Active Substance: SECUKINUMAB
     Dosage: OTHER FREQUENCY:OTHER;?
     Route: 058
     Dates: start: 201908

REACTIONS (1)
  - Prostatic operation [None]

NARRATIVE: CASE EVENT DATE: 20201022
